FAERS Safety Report 8188524-5 (Version None)
Quarter: 2012Q1

REPORT INFORMATION
  Report Type: 
  Country: None (occurrence: None)
  Receive Date: 20120306
  Receipt Date: 20120229
  Transmission Date: 20120608
  Serious: Yes (Other)
  Sender: FDA-Public Use
  Company Number: PHHY2012FR013763

PATIENT
  Sex: Female

DRUGS (3)
  1. TEGRETOL [Suspect]
     Indication: EPILEPSY
     Dosage: 2 MG, QD
     Dates: start: 20110801
  2. TEGRETOL [Suspect]
     Dosage: 4 MG DAILY
     Dates: end: 20110915
  3. TEGRETOL [Suspect]
     Dosage: 5 MG, BID
     Dates: start: 20110915, end: 20111109

REACTIONS (5)
  - AGITATION [None]
  - HYPOTONIA [None]
  - CONVULSION [None]
  - DECREASED APPETITE [None]
  - INCORRECT DOSE ADMINISTERED [None]
